FAERS Safety Report 12156681 (Version 1)
Quarter: 2016Q1

REPORT INFORMATION
  Report Type: Not Available
  Country: None (occurrence: US)
  Receive Date: 20160307
  Receipt Date: 20160307
  Transmission Date: 20160526
  Serious: No
  Sender: FDA-Public Use
  Company Number: US-AKORN-23426

PATIENT
  Sex: Female

DRUGS (1)
  1. THERATEARS LUBRICANT [Suspect]
     Active Substance: CARBOXYMETHYLCELLULOSE SODIUM

REACTIONS (2)
  - Visual impairment [None]
  - Abnormal sensation in eye [Unknown]

NARRATIVE: CASE EVENT DATE: 20160129
